FAERS Safety Report 6178511-0 (Version None)
Quarter: 2009Q2

REPORT INFORMATION
  Report Type: 
  Country: None (occurrence: None)
  Receive Date: 20090504
  Receipt Date: 20090424
  Transmission Date: 20091009
  Serious: Yes (Hospitalization, Other)
  Sender: FDA-Public Use
  Company Number: US-AMGEN-QUU344334

PATIENT
  Sex: Female

DRUGS (2)
  1. ENBREL [Suspect]
     Indication: PSORIATIC ARTHROPATHY
     Route: 058
     Dates: start: 20070202
  2. ENBREL [Suspect]
     Indication: SARCOIDOSIS

REACTIONS (5)
  - INJECTION SITE PAIN [None]
  - MALAISE [None]
  - SMALL INTESTINAL OBSTRUCTION [None]
  - TUBERCULOSIS [None]
  - WEIGHT DECREASED [None]
